FAERS Safety Report 7790387-4 (Version None)
Quarter: 2011Q3

REPORT INFORMATION
  Report Type: 
  Country: None (occurrence: None)
  Receive Date: 20110930
  Receipt Date: 20110927
  Transmission Date: 20111222
  Serious: Yes (Other)
  Sender: FDA-Public Use
  Company Number: CHPA2011US12066

PATIENT
  Age: 51 Year
  Sex: Male

DRUGS (2)
  1. 4 WAY MENTHOLATED NASAL SPRAY [Suspect]
     Indication: NASAL CONGESTION
     Dosage: 12 SPRAYS PER NOSTRIL, QD
     Route: 045
  2. VICKS VAPOSTEAM LIQUID MEDICATION [Concomitant]
     Indication: SINUS DISORDER
     Dosage: APPLIED TO OUTER NOSE
     Route: 061
     Dates: start: 19910101

REACTIONS (7)
  - DYSPHONIA [None]
  - RHINORRHOEA [None]
  - INCORRECT DRUG ADMINISTRATION DURATION [None]
  - THERAPEUTIC RESPONSE UNEXPECTED [None]
  - REBOUND EFFECT [None]
  - DRUG DEPENDENCE [None]
  - NASAL CONGESTION [None]
